FAERS Safety Report 8562678-0 (Version None)
Quarter: 2012Q3

REPORT INFORMATION
  Report Type: 
  Country: None (occurrence: None)
  Receive Date: 20120802
  Receipt Date: 20120725
  Transmission Date: 20120928
  Serious: Yes (Other)
  Sender: FDA-Public Use
  Company Number: US-ABBOTT-12P-163-0960330-00

PATIENT
  Sex: Female

DRUGS (7)
  1. LYSINE [Concomitant]
     Indication: ORAL HERPES
  2. BIRTH CONTROL PILLS [Concomitant]
     Indication: PRODUCT USED FOR UNKNOWN INDICATION
     Dosage: ONE DAILY
  3. PRILOSEC [Concomitant]
     Indication: PRODUCT USED FOR UNKNOWN INDICATION
  4. VITAMIN D [Concomitant]
     Indication: PRODUCT USED FOR UNKNOWN INDICATION
  5. HUMIRA [Suspect]
     Indication: RHEUMATOID ARTHRITIS
  6. AREVA ONE [Concomitant]
     Indication: RHEUMATOID ARTHRITIS
  7. LYSINE [Concomitant]
     Indication: PROPHYLAXIS

REACTIONS (6)
  - NASAL TURBINATE ABNORMALITY [None]
  - INJECTION SITE PAIN [None]
  - NASAL SEPTUM DEVIATION [None]
  - INCORRECT DOSE ADMINISTERED [None]
  - INJECTION SITE PAPULE [None]
  - INJECTION SITE ERYTHEMA [None]
